FAERS Safety Report 23331828 (Version 1)
Quarter: 2023Q4

REPORT INFORMATION
  Report Type: Spontaneous
  Country: None (occurrence: CA)
  Receive Date: 20231222
  Receipt Date: 20231222
  Transmission Date: 20240110
  Serious: Yes (Other)
  Sender: FDA-Public Use
  Company Number: CA-B.Braun Medical Inc.-2149683

PATIENT
  Age: 62 Year
  Sex: Male

DRUGS (12)
  1. ACETAMINOPHEN [Suspect]
     Active Substance: ACETAMINOPHEN
     Indication: Premedication
  2. SODIUM CHLORIDE [Suspect]
     Active Substance: SODIUM CHLORIDE
  3. ANAKINRA [Suspect]
     Active Substance: ANAKINRA
  4. CETIRIZINE HYDROCHLORIDE [Suspect]
     Active Substance: CETIRIZINE HYDROCHLORIDE
  5. DEXAMETHASONE [Suspect]
     Active Substance: DEXAMETHASONE
  6. FAMOTIDINE [Suspect]
     Active Substance: FAMOTIDINE
  7. FLUOROURACIL [Suspect]
     Active Substance: FLUOROURACIL
  8. LEUCOVORIN [Suspect]
     Active Substance: LEUCOVORIN\LEUCOVORIN CALCIUM
  9. IBUPROFEN [Suspect]
     Active Substance: IBUPROFEN
  10. MONTELUKAST [Suspect]
     Active Substance: MONTELUKAST SODIUM
  11. ONDANSETRON [Suspect]
     Active Substance: ONDANSETRON
  12. OXALIPLATIN [Suspect]
     Active Substance: OXALIPLATIN

REACTIONS (5)
  - Alpha tumour necrosis factor increased [None]
  - Cytokine release syndrome [None]
  - Interleukin level increased [None]
  - Monocyte chemotactic protein-1 increased [None]
  - Off label use [None]
